FAERS Safety Report 4585918-1 (Version None)
Quarter: 2005Q1

REPORT INFORMATION
  Report Type: 
  Country: None (occurrence: None)
  Receive Date: 20050214
  Receipt Date: 20050131
  Transmission Date: 20050727
  Serious: Yes (Other)
  Sender: FDA-Public Use
  Company Number: 2005025738

PATIENT
  Age: 52 Year
  Sex: Female

DRUGS (2)
  1. BEXTRA [Suspect]
     Indication: POST PROCEDURAL PAIN
     Dosage: 40 MG (40 MG, 1 IN 1 D), ORAL
     Route: 048
     Dates: start: 20050127, end: 20050131
  2. SULTAMICILLIN TOSILATE (SULTAMICILLIN TOSILATE) [Concomitant]

REACTIONS (1)
  - HYPERSENSITIVITY [None]
